FAERS Safety Report 6788440-7 (Version None)
Quarter: 2010Q2

REPORT INFORMATION
  Report Type: 
  Country: None (occurrence: None)
  Receive Date: 20100623
  Receipt Date: 20080311
  Transmission Date: 20101027
  Serious: No
  Sender: FDA-Public Use
  Company Number: US-PFIZER INC-2008022581

PATIENT
  Sex: Male
  Weight: 68.181 kg

DRUGS (5)
  1. XALATAN [Suspect]
     Indication: GLAUCOMA
     Dates: start: 20071101, end: 20080122
  2. TOPROL-XL [Concomitant]
     Route: 048
  3. ACETYLSALICYLIC ACID [Concomitant]
     Route: 048
  4. NAPROXEN [Concomitant]
     Route: 048
  5. MULTI-VITAMINS [Concomitant]
     Route: 048

REACTIONS (1)
  - EPISTAXIS [None]
